FAERS Safety Report 4594833-9 (Version None)
Quarter: 2005Q1

REPORT INFORMATION
  Report Type: 
  Country: None (occurrence: None)
  Receive Date: 20050223
  Receipt Date: 20050204
  Transmission Date: 20050727
  Serious: Yes (Hospitalization)
  Sender: FDA-Public Use
  Company Number: MED000001

PATIENT
  Age: 29 Year
  Sex: Female
  Weight: 71.6683 kg

DRUGS (2)
  1. DEXTROSE 5% AND SODIUM CHLORIDE W/ POTASSIUM CHLORIDE [Suspect]
     Indication: PLASMAPHERESIS
     Dosage: ONCE; INTRAVENOUS
     Route: 042
     Dates: start: 20041209, end: 20041209
  2. SODIUM CITRATE [Suspect]
     Indication: PLASMAPHERESIS
     Dosage: ONCE; INTRAVENOUS
     Route: 042
     Dates: start: 20041209, end: 20041209

REACTIONS (18)
  - ASTHENIA [None]
  - BACK PAIN [None]
  - BACTERIAL SEPSIS [None]
  - CHILLS [None]
  - DIZZINESS [None]
  - FEELING HOT [None]
  - GASTROENTERITIS [None]
  - HEART RATE INCREASED [None]
  - HYPERHIDROSIS [None]
  - KIDNEY INFECTION [None]
  - NAUSEA [None]
  - PALLOR [None]
  - PYELONEPHRITIS [None]
  - PYREXIA [None]
  - SYNCOPE VASOVAGAL [None]
  - URINARY TRACT INFECTION [None]
  - VISION BLURRED [None]
  - VOMITING [None]
